FAERS Safety Report 10035243 (Version 1)
Quarter: 2014Q1

REPORT INFORMATION
  Report Type: Spontaneous
  Country: US (occurrence: None)
  Receive Date: 20140306
  Receipt Date: 20140306
  Transmission Date: 20141002
  Serious: Yes (Hospitalization, Other)
  Sender: FDA-Public Use
  Company Number: 163-21880-13011655

PATIENT
  Age: 81 Year
  Sex: Female
  Weight: 71.67 kg

DRUGS (5)
  1. REVLIMID (LENALIDOMIDE) (CAPSULES) [Suspect]
     Indication: PLASMA CELL MYELOMA
     Dosage: 5 MG, EVERY M. W, F, PO
     Route: 048
     Dates: start: 20120705
  2. DEXAMETHASONE (DEXAMETHASONE) [Concomitant]
  3. WARFARIN (WARFARIN) [Concomitant]
  4. NITRO-DUR (GLYCERYL TRINITRATE) [Concomitant]
  5. LANOXIN (DIGOXIN) [Concomitant]

REACTIONS (5)
  - Cardiac failure congestive [None]
  - Local swelling [None]
  - Herpes zoster [None]
  - Rash [None]
  - Gout [None]
